FAERS Safety Report 5639290-6 (Version None)
Quarter: 2008Q1

REPORT INFORMATION
  Report Type: 
  Country: None (occurrence: None)
  Receive Date: 20080226
  Receipt Date: 20080130
  Transmission Date: 20080703
  Serious: No
  Sender: FDA-Public Use
  Company Number: US-BOEHRINGER INGELHEIM GMBH, GERMANY-2008-BP-01510BP

PATIENT
  Age: 51 Year
  Sex: Male

DRUGS (17)
  1. COMBIVENT [Suspect]
     Indication: ASTHMA
     Dosage: 2 PUFFS AS NEEDED/2 PUFFS UP TO 3 TIMES/WEEK
     Route: 055
     Dates: start: 20030101
  2. JANUVIA [Concomitant]
  3. POTASSIUM CHLORIDE [Concomitant]
  4. TRIAMTERENE AND HYDROCHLOROTHIAZIDE [Concomitant]
  5. GLIPIZIDE [Concomitant]
  6. AMLODIPINE [Concomitant]
  7. ATENOLOL [Concomitant]
     Indication: HYPERTENSION
  8. HYOSCYAMINE [Concomitant]
  9. AGGRENOX [Concomitant]
     Indication: CEREBROVASCULAR ACCIDENT PROPHYLAXIS
  10. AGGRENOX [Concomitant]
     Indication: TRANSIENT ISCHAEMIC ATTACK
  11. NEURONTIN [Concomitant]
  12. FUROSEMIDE [Concomitant]
  13. NEXIUM [Concomitant]
  14. LANTUS [Concomitant]
     Indication: DIABETES MELLITUS
  15. MUPIROCIN [Concomitant]
  16. TYLENOL (CAPLET) [Concomitant]
  17. MAALOX [Concomitant]

REACTIONS (1)
  - DYSPNOEA [None]
